FAERS Safety Report 18729162 (Version 2)
Quarter: 2021Q1

REPORT INFORMATION
  Report Type: Other
  Country: ES (occurrence: ES)
  Receive Date: 20210112
  Receipt Date: 20210125
  Transmission Date: 20210419
  Serious: Yes (Other)
  Sender: FDA-Public Use
  Company Number: ES-ROCHE-2743449

PATIENT

DRUGS (3)
  1. PARACETAMOL [Concomitant]
     Active Substance: ACETAMINOPHEN
     Indication: PREMEDICATION
  2. OCRELIZUMAB. [Suspect]
     Active Substance: OCRELIZUMAB
     Indication: MULTIPLE SCLEROSIS
     Route: 042
  3. METHYLPREDNISOLONE. [Concomitant]
     Active Substance: METHYLPREDNISOLONE
     Indication: PREMEDICATION
     Route: 042

REACTIONS (15)
  - Urinary tract infection [Unknown]
  - Ear infection [Unknown]
  - Biliary colic [Unknown]
  - Gastroenteritis [Unknown]
  - Cellulitis [Unknown]
  - Upper respiratory tract infection [Unknown]
  - Pneumonia [Unknown]
  - Rash [Unknown]
  - Oral herpes [Unknown]
  - Oral candidiasis [Unknown]
  - Drug ineffective [Unknown]
  - Herpes zoster [Unknown]
  - Tooth abscess [Unknown]
  - Alopecia areata [Unknown]
  - Infusion related reaction [Unknown]
